FAERS Safety Report 10905361 (Version 1)
Quarter: 2015Q1

REPORT INFORMATION
  Report Type: Spontaneous
  Country: US (occurrence: None)
  Receive Date: 20150309
  Receipt Date: 20150309
  Transmission Date: 20150721
  Serious: Yes (Disabling)
  Sender: FDA-Public Use
  Company Number: None

PATIENT
  Age: 33 Year
  Sex: Female

DRUGS (1)
  1. LUPRON [Suspect]
     Active Substance: LEUPROLIDE ACETATE
     Dosage: ONCE A MONTH, MONTHLY, INTO THE MUSCLE

REACTIONS (6)
  - Quality of life decreased [None]
  - Arthralgia [None]
  - Gallbladder disorder [None]
  - Bone pain [None]
  - Heart rate increased [None]
  - Fatigue [None]
